FAERS Safety Report 9352959 (Version 1)
Quarter: 2013Q3

REPORT INFORMATION
  Report Type: Spontaneous
  Country: US (occurrence: None)
  Receive Date: 20130614
  Receipt Date: 20130614
  Transmission Date: 20140515
  Serious: Yes (Hospitalization)
  Sender: FDA-Public Use
  Company Number: None

PATIENT
  Age: 82 Year
  Sex: Male
  Weight: 82.1 kg

DRUGS (1)
  1. RITUXIMAB [Suspect]
     Indication: ILL-DEFINED DISORDER
     Route: 042
     Dates: start: 20120530

REACTIONS (2)
  - Urinary tract infection [None]
  - Klebsiella infection [None]
